FAERS Safety Report 25774840 (Version 4)
Quarter: 2025Q4

REPORT INFORMATION
  Report Type: Report from Study
  Country: EU (occurrence: EU)
  Receive Date: 20250908
  Receipt Date: 20251103
  Transmission Date: 20260118
  Serious: Yes (Death, Hospitalization)
  Sender: PFIZER
  Company Number: EU-AstrazenecaRSG-2301-D926QC00001(Prod)000007

PATIENT
  Age: 49 Year
  Sex: Female
  Weight: 114 kg

DRUGS (22)
  1. EPIRUBICIN HYDROCHLORIDE [Suspect]
     Active Substance: EPIRUBICIN HYDROCHLORIDE
     Indication: Breast cancer
     Dosage: 90.0 MILLILITRE PER SQUARE METRE
     Route: 042
     Dates: start: 20250505, end: 20250704
  2. PACLITAXEL [Suspect]
     Active Substance: PACLITAXEL
     Indication: Breast cancer
     Dosage: 80 MG/M2
     Route: 042
     Dates: start: 20250124, end: 20250124
  3. PACLITAXEL [Suspect]
     Active Substance: PACLITAXEL
     Dosage: 80 MG/M2
     Route: 042
     Dates: start: 20250124, end: 20250704
  4. PACLITAXEL [Suspect]
     Active Substance: PACLITAXEL
     Dosage: 80 MG/M2
     Route: 042
     Dates: start: 20250131, end: 20250131
  5. PACLITAXEL [Suspect]
     Active Substance: PACLITAXEL
     Dosage: 80 MG/M2
     Route: 042
     Dates: start: 20250214, end: 20250214
  6. PACLITAXEL [Suspect]
     Active Substance: PACLITAXEL
     Dosage: 80 MG/M2
     Route: 042
     Dates: start: 20250221, end: 20250221
  7. PACLITAXEL [Suspect]
     Active Substance: PACLITAXEL
     Dosage: 80 MG/M2
     Route: 042
     Dates: start: 20250228, end: 20250228
  8. PACLITAXEL [Suspect]
     Active Substance: PACLITAXEL
     Dosage: 80 MG/M2
     Route: 042
     Dates: start: 20250307, end: 20250307
  9. PACLITAXEL [Suspect]
     Active Substance: PACLITAXEL
     Dosage: 80 MG/M2
     Route: 042
     Dates: start: 20250320, end: 20250320
  10. PACLITAXEL [Suspect]
     Active Substance: PACLITAXEL
     Dosage: 80 MG/M2
     Route: 042
     Dates: start: 20250328, end: 20250328
  11. PACLITAXEL [Suspect]
     Active Substance: PACLITAXEL
     Dosage: 80 MG/M2
     Route: 042
     Dates: start: 20250404, end: 20250404
  12. PACLITAXEL [Suspect]
     Active Substance: PACLITAXEL
     Dosage: 80 MG/M2
     Route: 042
     Dates: start: 20250410, end: 20250410
  13. PACLITAXEL [Suspect]
     Active Substance: PACLITAXEL
     Dosage: 64 MG/M2
     Route: 042
     Dates: start: 20250417, end: 20250417
  14. CARBOPLATIN [Suspect]
     Active Substance: CARBOPLATIN
     Indication: Breast cancer
     Dosage: 225 MG/M2
     Route: 065
     Dates: start: 20250124, end: 20250417
  15. PEMBROLIZUMAB [Suspect]
     Active Substance: PEMBROLIZUMAB
     Indication: Breast cancer
     Dosage: 200 MG
     Route: 042
     Dates: start: 20250124, end: 20250124
  16. PEMBROLIZUMAB [Suspect]
     Active Substance: PEMBROLIZUMAB
     Dosage: 200 MG
     Route: 042
     Dates: start: 20250221, end: 20250221
  17. PEMBROLIZUMAB [Suspect]
     Active Substance: PEMBROLIZUMAB
     Dosage: 200 MG
     Route: 042
     Dates: start: 20250320, end: 20250320
  18. PEMBROLIZUMAB [Suspect]
     Active Substance: PEMBROLIZUMAB
     Dosage: 200 MG
     Route: 042
     Dates: start: 20250410, end: 20250410
  19. PEMBROLIZUMAB [Suspect]
     Active Substance: PEMBROLIZUMAB
     Dosage: 200 MG
     Route: 042
     Dates: start: 20250505, end: 20250505
  20. PEMBROLIZUMAB [Suspect]
     Active Substance: PEMBROLIZUMAB
     Dosage: 200 MG
     Route: 042
     Dates: start: 20250605, end: 20250605
  21. PEMBROLIZUMAB [Suspect]
     Active Substance: PEMBROLIZUMAB
     Dosage: 200 MG
     Route: 042
     Dates: start: 20250704, end: 20250704
  22. CYCLOPHOSPHAMIDE [Suspect]
     Active Substance: CYCLOPHOSPHAMIDE
     Indication: Breast cancer
     Dosage: 600 MG/M2
     Route: 042
     Dates: start: 20250505, end: 20250704

REACTIONS (1)
  - Cholestasis [Fatal]

NARRATIVE: CASE EVENT DATE: 20250813
